FAERS Safety Report 7369311-4 (Version None)
Quarter: 2011Q1

REPORT INFORMATION
  Report Type: 
  Country: None (occurrence: None)
  Receive Date: 20110323
  Receipt Date: 20110317
  Transmission Date: 20110831
  Serious: No
  Sender: FDA-Public Use
  Company Number: B0702415A

PATIENT
  Sex: Male

DRUGS (5)
  1. REVOLADE [Suspect]
     Dosage: 25MG PER DAY
     Route: 048
     Dates: start: 20110202
  2. ADALAT CC [Concomitant]
     Route: 048
  3. NOVORAPID [Concomitant]
     Route: 058
  4. REVOLADE [Suspect]
     Indication: IDIOPATHIC THROMBOCYTOPENIC PURPURA
     Route: 048
     Dates: start: 20110119
  5. ACTONEL [Concomitant]
     Route: 048

REACTIONS (1)
  - PHOTOSENSITIVITY REACTION [None]
